FAERS Safety Report 9253509 (Version 1)
Quarter: 2013Q2

REPORT INFORMATION
  Report Type: Spontaneous
  Country: ES (occurrence: ES)
  Receive Date: 20130425
  Receipt Date: 20130425
  Transmission Date: 20140414
  Serious: Yes (Other)
  Sender: FDA-Public Use
  Company Number: ES-RANBAXY-2013RR-68088

PATIENT
  Age: 36 Month
  Sex: Female

DRUGS (1)
  1. IBUPROFEN [Suspect]
     Indication: SYNOVITIS
     Dosage: UNK
     Route: 048

REACTIONS (1)
  - Hepatotoxicity [Recovered/Resolved]
